FAERS Safety Report 17868902 (Version 4)
Quarter: 2020Q2

REPORT INFORMATION
  Report Type: Report from Study
  Country: None (occurrence: TR)
  Receive Date: 20200607
  Receipt Date: 20200615
  Transmission Date: 20200714
  Serious: Yes (Hospitalization, Other)
  Sender: FDA-Public Use
  Company Number: TR-ABBVIE-20K-161-3424322-00

PATIENT
  Age: 81 Year
  Sex: Male

DRUGS (1)
  1. DUODOPA [Suspect]
     Active Substance: CARBIDOPA\LEVODOPA
     Indication: PARKINSON^S DISEASE
     Dosage: MORNING DOSE (ML): 4.50 CONTINUOUS DOSE (ML): 3.20 EXTRA DOSE (ML): 1.00
     Route: 050
     Dates: start: 20180412, end: 20200604

REACTIONS (18)
  - Abdominal mass [Recovered/Resolved]
  - Hypertension [Unknown]
  - Inappropriate schedule of product administration [Recovered/Resolved]
  - Fall [Recovered/Resolved]
  - Abdominal distension [Recovered/Resolved]
  - Intestinal obstruction [Recovered/Resolved]
  - Urine output decreased [Unknown]
  - Blood creatinine increased [Recovering/Resolving]
  - Fall [Recovered/Resolved]
  - Abdominal distension [Recovering/Resolving]
  - Dysphagia [Recovering/Resolving]
  - Intestinal obstruction [Recovered/Resolved]
  - Pneumonia [Not Recovered/Not Resolved]
  - Renal function test abnormal [Not Recovered/Not Resolved]
  - Constipation [Recovered/Resolved]
  - Diarrhoea [Unknown]
  - Physical disability [Recovered/Resolved]
  - Device occlusion [Recovered/Resolved]

NARRATIVE: CASE EVENT DATE: 20200525
